FAERS Safety Report 11799193 (Version 1)
Quarter: 2015Q4

REPORT INFORMATION
  Report Type: Report from Study
  Country: BR (occurrence: BR)
  Receive Date: 20151203
  Receipt Date: 20151203
  Transmission Date: 20160305
  Serious: Yes (Hospitalization)
  Sender: FDA-Public Use
  Company Number: BR-ABBVIE-13P-020-1077684-00

PATIENT
  Age: 34 Year
  Sex: Female
  Weight: 63 kg

DRUGS (3)
  1. NIMESULIDE [Concomitant]
     Active Substance: NIMESULIDE
     Indication: SPONDYLITIS
     Route: 048
     Dates: start: 201111
  2. HUMIRA [Suspect]
     Active Substance: ADALIMUMAB
     Indication: ANKYLOSING SPONDYLITIS
     Route: 058
     Dates: start: 20100101, end: 20130101
  3. OMEPRAZOLE. [Concomitant]
     Active Substance: OMEPRAZOLE
     Indication: PRODUCT USED FOR UNKNOWN INDICATION
     Route: 048

REACTIONS (9)
  - Pharyngitis [Recovered/Resolved]
  - Immunodeficiency [Recovered/Resolved]
  - Meningitis viral [Recovered/Resolved]
  - Decreased immune responsiveness [Recovered/Resolved]
  - Dizziness [Recovered/Resolved]
  - Lymphadenopathy [Recovering/Resolving]
  - Oropharyngeal pain [Unknown]
  - Pharyngitis [Recovering/Resolving]
  - Headache [Recovered/Resolved]

NARRATIVE: CASE EVENT DATE: 201002
